FAERS Safety Report 4614057-6 (Version None)
Quarter: 2005Q1

REPORT INFORMATION
  Report Type: 
  Country: None (occurrence: None)
  Receive Date: 20050316
  Receipt Date: 20050302
  Transmission Date: 20050727
  Serious: Yes (Life-Threatening, Hospitalization)
  Sender: FDA-Public Use
  Company Number: DSA_26056_2005

PATIENT
  Age: 83 Year
  Sex: Female

DRUGS (6)
  1. ENALAPRIL MALEATE [Suspect]
     Indication: BLOOD PRESSURE INCREASED
     Dosage: DF DAILY PO
     Route: 048
     Dates: end: 20020101
  2. ASPIRIN [Concomitant]
  3. KATADOLON [Concomitant]
  4. NATRILIX [Concomitant]
  5. VIOXX [Concomitant]
  6. SOTALOL HCL [Concomitant]

REACTIONS (4)
  - OROPHARYNGEAL SWELLING [None]
  - SWOLLEN TONGUE [None]
  - TONGUE BLISTERING [None]
  - TONGUE HAEMORRHAGE [None]
